FAERS Safety Report 5901962-3 (Version None)
Quarter: 2008Q3

REPORT INFORMATION
  Report Type: 
  Country: None (occurrence: None)
  Receive Date: 20080925
  Receipt Date: 20080917
  Transmission Date: 20090109
  Serious: Yes (Hospitalization, Disabling, Other)
  Sender: FDA-Public Use
  Company Number: 2003-01-1245

PATIENT
  Age: 44 Year
  Sex: Male
  Weight: 86.1834 kg

DRUGS (10)
  1. PEG-INTRON [Suspect]
     Indication: HEPATITIS C
     Dosage: 120 MCG;QW;SC
     Route: 058
     Dates: start: 20020812, end: 20020916
  2. REBETOL [Suspect]
     Indication: HEPATITIS C
     Dosage: 120 MCG;QW;SC
     Route: 058
     Dates: start: 20020812, end: 20020916
  3. ACETAMINOPHEN [Concomitant]
  4. IBUPROFEN [Concomitant]
  5. METHADONE HCL [Concomitant]
  6. MILK THISTLE [Concomitant]
  7. NICOTINE RESIN [Concomitant]
  8. CLARITIN [Concomitant]
  9. PENICILLIN [Concomitant]
  10. ASPIRIN [Concomitant]

REACTIONS (39)
  - ACNE [None]
  - ADJUSTMENT DISORDER [None]
  - BACK PAIN [None]
  - BALANCE DISORDER [None]
  - BLINDNESS [None]
  - BLOOD CHOLESTEROL INCREASED [None]
  - BLOOD GLUCOSE INCREASED [None]
  - CHLOROPSIA [None]
  - CRYOGLOBULINAEMIA [None]
  - DEPRESSION [None]
  - DIZZINESS [None]
  - DRY EYE [None]
  - DYSTHYMIC DISORDER [None]
  - EYE PAIN [None]
  - FALL [None]
  - GLIOSIS [None]
  - HEPATIC CIRRHOSIS [None]
  - HEPATIC STEATOSIS [None]
  - HORDEOLUM [None]
  - HYPOAESTHESIA [None]
  - INFLUENZA LIKE ILLNESS [None]
  - INSOMNIA [None]
  - LUPUS VULGARIS [None]
  - MUSCLE SPASMS [None]
  - NASOPHARYNGITIS [None]
  - NAUSEA [None]
  - OPTIC ISCHAEMIC NEUROPATHY [None]
  - OPTIC NEURITIS [None]
  - OTITIS MEDIA [None]
  - PANIC ATTACK [None]
  - PHOTOPHOBIA [None]
  - SINUS HEADACHE [None]
  - SINUSITIS [None]
  - SPINAL CORD INJURY [None]
  - VARICES OESOPHAGEAL [None]
  - VERTIGO [None]
  - VISION BLURRED [None]
  - VOMITING [None]
  - XANTHOPSIA [None]
